FAERS Safety Report 6909043-7 (Version None)
Quarter: 2010Q3

REPORT INFORMATION
  Report Type: 
  Country: None (occurrence: None)
  Receive Date: 20100803
  Receipt Date: 20100720
  Transmission Date: 20110219
  Serious: Yes (Other)
  Sender: FDA-Public Use
  Company Number: 010517

PATIENT
  Age: 11 Year
  Sex: Male

DRUGS (7)
  1. BUSULFEX [Suspect]
     Indication: STEM CELL TRANSPLANT
     Dosage: 0.8 MG/KG UNK  INTRAVENOUS
     Route: 042
  2. ANTI-THYMOCYTE GLOBULIN NOS [Concomitant]
  3. CYCLOPHOSPHAMIDE [Concomitant]
  4. CYCLOSPORINE [Concomitant]
  5. PHENYTOIN [Concomitant]
  6. FILGRASTIM (FILGRASTIM) [Concomitant]
  7. PREDNISONE [Concomitant]

REACTIONS (1)
  - RESTRICTIVE PULMONARY DISEASE [None]
